FAERS Safety Report 14834810 (Version 5)
Quarter: 2018Q3

REPORT INFORMATION
  Report Type: Spontaneous
  Country: US (occurrence: US)
  Receive Date: 20180501
  Receipt Date: 20180702
  Transmission Date: 20181010
  Serious: Yes (Other)
  Sender: FDA-Public Use
  Company Number: US-GLAXOSMITHKLINE-US2018071934

PATIENT
  Age: 59 Year
  Sex: Male

DRUGS (12)
  1. METFORMIN [Concomitant]
     Active Substance: METFORMIN HYDROCHLORIDE
  2. TYLENOL [Concomitant]
     Active Substance: ACETAMINOPHEN
  3. BREO ELLIPTA [Interacting]
     Active Substance: FLUTICASONE FUROATE\VILANTEROL TRIFENATATE
     Dosage: UNK
  4. CLINDAMYCIN. [Concomitant]
     Active Substance: CLINDAMYCIN
  5. BENADRYL [Interacting]
     Active Substance: DIPHENHYDRAMINE HYDROCHLORIDE
  6. HUMALOG [Concomitant]
     Active Substance: INSULIN LISPRO
  7. TOUJEO [Concomitant]
     Active Substance: INSULIN GLARGINE
  8. HYDROCHLOROTHIAZIDE. [Concomitant]
     Active Substance: HYDROCHLOROTHIAZIDE
  9. LIPITOR [Concomitant]
     Active Substance: ATORVASTATIN CALCIUM
  10. BREO ELLIPTA [Suspect]
     Active Substance: FLUTICASONE FUROATE\VILANTEROL TRIFENATATE
     Indication: ASTHMA
     Dosage: 1 PUFF(S), 1D
     Route: 055
     Dates: start: 20170801, end: 20180120
  11. ALBUTEROL. [Concomitant]
     Active Substance: ALBUTEROL
  12. LISINOPRIL. [Concomitant]
     Active Substance: LISINOPRIL

REACTIONS (27)
  - Tooth disorder [Recovering/Resolving]
  - Drug ineffective [Recovered/Resolved]
  - Feeling abnormal [Unknown]
  - Dental caries [Unknown]
  - Pain [Unknown]
  - Tooth loss [Unknown]
  - Toothache [Unknown]
  - Ear pain [Unknown]
  - Endodontic procedure [Unknown]
  - Dysgeusia [Unknown]
  - Tooth abscess [Unknown]
  - Insomnia [Not Recovered/Not Resolved]
  - Cough [Recovered/Resolved]
  - Parosmia [Unknown]
  - Poor personal hygiene [Unknown]
  - Oral pustule [Unknown]
  - Abdominal pain upper [Recovering/Resolving]
  - Dry mouth [Unknown]
  - Dental plaque [Unknown]
  - Dental fistula [Unknown]
  - Gingival bleeding [Unknown]
  - Tooth fracture [Unknown]
  - Drug interaction [Unknown]
  - Endodontic procedure [Unknown]
  - Headache [Unknown]
  - Influenza like illness [Unknown]
  - Pulpitis dental [Unknown]

NARRATIVE: CASE EVENT DATE: 2017
